FAERS Safety Report 9521800 (Version 7)
Quarter: 2016Q3

REPORT INFORMATION
  Report Type: Report from Study
  Country: JP (occurrence: JP)
  Receive Date: 20130913
  Receipt Date: 20160706
  Transmission Date: 20161109
  Serious: Yes (Death, Hospitalization, Other)
  Sender: FDA-Public Use
  Company Number: PHHY2013JP036083

PATIENT
  Age: 68 Year
  Sex: Male
  Weight: 58 kg

DRUGS (2)
  1. AFINITOR [Suspect]
     Active Substance: EVEROLIMUS
     Indication: PANCREATIC NEUROENDOCRINE TUMOUR
     Dosage: 10 MG, QD
     Route: 048
     Dates: start: 20121101, end: 20121125
  2. AFINITOR [Suspect]
     Active Substance: EVEROLIMUS
     Dosage: 5 MG, QD
     Route: 048
     Dates: start: 20130107, end: 20130530

REACTIONS (11)
  - Pyrexia [Unknown]
  - Cough [Recovering/Resolving]
  - Ascites [Unknown]
  - Haemoglobin decreased [Unknown]
  - Malnutrition [Unknown]
  - Death [Fatal]
  - Neoplasm progression [Unknown]
  - Dyspnoea [Recovering/Resolving]
  - C-reactive protein increased [Unknown]
  - Interstitial lung disease [Unknown]
  - Metastases to bone [Unknown]

NARRATIVE: CASE EVENT DATE: 20121126
